FAERS Safety Report 5680217-9 (Version None)
Quarter: 2008Q1

REPORT INFORMATION
  Report Type: 
  Country: None (occurrence: None)
  Receive Date: 20080326
  Receipt Date: 20080314
  Transmission Date: 20080703
  Serious: Yes (Death, Other)
  Sender: FDA-Public Use
  Company Number: IT-ELI_LILLY_AND_COMPANY-IT200803003702

PATIENT
  Sex: Female

DRUGS (9)
  1. XIGRIS [Suspect]
     Indication: SEPTIC SHOCK
     Dosage: 24, MCG/KG/H
     Route: 042
     Dates: start: 20051108, end: 20051108
  2. METHYLPREDNISOLONE SODIUM SUCCINATE [Concomitant]
     Dosage: 500 MG, UNKNOWN
     Route: 042
  3. AMPLITAL [Concomitant]
     Dosage: 8 G, UNKNOWN
     Route: 042
  4. CEFTRIAXONE /00672202/ [Concomitant]
     Dosage: 4 G, UNKNOWN
     Route: 042
  5. TAVANIC [Concomitant]
     Dosage: 1000 MG, UNKNOWN
     Route: 042
  6. DOBUTAMINE HCL [Concomitant]
     Dosage: UNK, UNKNOWN
     Route: 042
  7. NORADRENALIN /00127502/ [Concomitant]
     Dosage: UNK, UNKNOWN
     Route: 042
  8. DECADRON [Concomitant]
     Dosage: 8 MG, UNKNOWN
     Route: 042
  9. DESMOPRESSIN ACETATE [Concomitant]
     Dosage: UNK, UNKNOWN
     Route: 042

REACTIONS (3)
  - BRAIN OEDEMA [None]
  - DEATH [None]
  - SUBARACHNOID HAEMORRHAGE [None]
